FAERS Safety Report 5795349-4 (Version None)
Quarter: 2008Q2

REPORT INFORMATION
  Report Type: 
  Country: None (occurrence: None)
  Receive Date: 20080630
  Receipt Date: 20080618
  Transmission Date: 20081010
  Serious: Yes (Other)
  Sender: FDA-Public Use
  Company Number: US-PFIZER INC-2008051640

PATIENT
  Sex: Female
  Weight: 77.1 kg

DRUGS (3)
  1. ZOLOFT [Suspect]
     Indication: ANXIETY
  2. ZOLOFT [Suspect]
     Indication: OBSESSIVE-COMPULSIVE DISORDER
  3. XANAX [Concomitant]
     Indication: ANXIETY

REACTIONS (3)
  - CHOKING [None]
  - DYSPHAGIA [None]
  - SINUSITIS [None]
